FAERS Safety Report 7518339-X (Version None)
Quarter: 2011Q2

REPORT INFORMATION
  Report Type: 
  Country: None (occurrence: None)
  Receive Date: 20110602
  Receipt Date: 20091122
  Transmission Date: 20111010
  Serious: Yes (Hospitalization, Other)
  Sender: FDA-Public Use
  Company Number: US-BAYER-200940166NA

PATIENT
  Age: 53 Year
  Sex: Female
  Weight: 91 kg

DRUGS (34)
  1. ACTOS [Concomitant]
     Dosage: 15 MG, QD
     Dates: start: 20040101
  2. CRYOPRECIPITATES [Concomitant]
     Dosage: 10 U, UNK
     Route: 042
     Dates: start: 20050107
  3. TRASYLOL [Suspect]
     Indication: CORONARY ARTERY BYPASS
     Route: 042
     Dates: start: 20050107
  4. DILTIAZEM [Concomitant]
     Dosage: 360 MG, QD
     Route: 048
     Dates: start: 20040101
  5. TOPROL-XL [Concomitant]
     Dosage: 200 MG, BID
     Dates: start: 20040101
  6. PLAVIX [Concomitant]
     Dosage: 75 MG, QD
     Route: 048
     Dates: start: 20040101, end: 20050105
  7. PLETAL [Concomitant]
     Dosage: 100 MG, BID
     Route: 048
     Dates: start: 20040101
  8. NITROGLYCERIN [Concomitant]
     Dosage: 0.4 MG, PRN
     Route: 060
  9. DOPAMINE HCL [Concomitant]
     Dosage: UNK
     Dates: start: 20050107
  10. LISINOPRIL [Concomitant]
     Dosage: 10 MG, BID
     Route: 048
     Dates: end: 20050105
  11. SYNTHROID [Concomitant]
     Dosage: 25 ?G, QD
     Route: 048
     Dates: start: 20040101
  12. LASIX [Concomitant]
     Dosage: 100 MG, BID
     Route: 042
     Dates: start: 20050103
  13. LASIX [Concomitant]
     Dosage: 40 MG, QD
     Route: 048
  14. DIOVAN HCT [Concomitant]
     Dosage: 160 MG / 12.5 MG
     Route: 048
     Dates: start: 20040101, end: 20050105
  15. NIPRIDE [Concomitant]
     Dosage: UNK
     Dates: start: 20050107
  16. PLASMA [Concomitant]
     Dosage: UNK
     Route: 042
     Dates: start: 20050107
  17. PLATELETS [Concomitant]
     Dosage: 6 U, UNK
     Route: 042
     Dates: start: 20050107
  18. PROTAMINE SULFATE [Concomitant]
     Dosage: UNK
     Dates: start: 20050107
  19. LANOXIN [Concomitant]
     Dosage: 75 MG, EVERY OTHER DAY
     Dates: start: 20040101, end: 20050105
  20. NORVASC [Concomitant]
     Dosage: 75 MG, QD
     Dates: start: 20040101, end: 20050105
  21. COUMADIN [Concomitant]
     Dosage: 5 MG ALTERNATING WITH 7.5 MG EVERY OTHER DAY
     Route: 048
     Dates: start: 20040101, end: 20050105
  22. ACETYLSALICYLIC ACID SRT [Concomitant]
     Dosage: 325 MG, QD
     Route: 048
  23. NITROGLYCERIN [Concomitant]
     Dosage: PASTE, TWO INCHES
     Route: 062
     Dates: start: 20050103, end: 20050103
  24. ACEON [Concomitant]
     Dosage: 40 MG, QD
     Route: 048
  25. NATRECOR [Concomitant]
     Dosage: UNK
     Dates: start: 20050107
  26. CLONIDINE [Concomitant]
     Dosage: 0.2 MG, BID
     Route: 048
     Dates: start: 20040101
  27. VANCOMYCIN [Concomitant]
     Dosage: 1 G, UNK
     Route: 042
     Dates: start: 20050107, end: 20050108
  28. EPINEPHRINE [Concomitant]
     Dosage: UNK
     Dates: start: 20050107
  29. BLOOD AND RELATED PRODUCTS [Concomitant]
     Dosage: UNK
     Route: 042
     Dates: start: 20050107
  30. POTASSIUM CHLORIDE [Concomitant]
     Dosage: 10 MEQ
     Route: 048
  31. ISORDIL [Concomitant]
     Dosage: 30 MG, QD
     Route: 048
     Dates: start: 20040101
  32. MUCOMYST [Concomitant]
     Dosage: 600 MG, TID
     Route: 048
     Dates: start: 20050104
  33. LOVENOX [Concomitant]
     Dosage: 1 MG / KG
     Route: 058
  34. NITROGLYCERIN [Concomitant]
     Dosage: DRIP, 10 MCG / MIN
     Route: 042

REACTIONS (11)
  - RENAL FAILURE [None]
  - FEAR [None]
  - RENAL IMPAIRMENT [None]
  - EMOTIONAL DISTRESS [None]
  - STRESS [None]
  - ANXIETY [None]
  - RENAL INJURY [None]
  - ANHEDONIA [None]
  - PAIN [None]
  - UNEVALUABLE EVENT [None]
  - INJURY [None]
